FAERS Safety Report 25143257 (Version 1)
Quarter: 2025Q2

REPORT INFORMATION
  Report Type: Spontaneous
  Country: FR (occurrence: FR)
  Receive Date: 20250401
  Receipt Date: 20250401
  Transmission Date: 20250717
  Serious: Yes (Other)
  Sender: Unknown Manufacturer
  Company Number: FR-AFSSAPS-ST2025000267

PATIENT
  Age: 69 Year
  Sex: Male
  Weight: 94 kg

DRUGS (22)
  1. TACHOSIL [Suspect]
     Active Substance: FIBRINOGEN HUMAN\HUMAN THROMBIN
     Indication: Haemorrhage
     Route: 026
     Dates: start: 20250305, end: 20250305
  2. VIALEBEX [Suspect]
     Active Substance: ALBUMIN HUMAN
     Indication: Haemorrhage
     Route: 042
     Dates: start: 20250305
  3. VIALEBEX [Suspect]
     Active Substance: ALBUMIN HUMAN
     Route: 042
     Dates: start: 20250305, end: 20250305
  4. OCTAPLEX [Suspect]
     Active Substance: COAGULATION FACTOR IX HUMAN\COAGULATION FACTOR VII HUMAN\COAGULATION FACTOR X HUMAN\PROTEIN C\PROTEI
     Indication: Haemorrhage
     Route: 042
     Dates: start: 20250305, end: 20250305
  5. OCTAPLEX [Suspect]
     Active Substance: COAGULATION FACTOR IX HUMAN\COAGULATION FACTOR VII HUMAN\COAGULATION FACTOR X HUMAN\PROTEIN C\PROTEI
     Route: 042
     Dates: start: 20250305, end: 20250305
  6. CLOTTAFACT [Suspect]
     Active Substance: FIBRINOGEN HUMAN
     Indication: Haemorrhage
     Route: 042
     Dates: start: 20250305, end: 20250305
  7. CLOTTAFACT [Suspect]
     Active Substance: FIBRINOGEN HUMAN
     Route: 042
     Dates: start: 20250305, end: 20250305
  8. PROPOFOL [Suspect]
     Active Substance: PROPOFOL
     Indication: Anaesthesia
     Route: 042
     Dates: start: 20250305, end: 20250305
  9. CEFAZOLIN SODIUM [Suspect]
     Active Substance: CEFAZOLIN SODIUM
     Indication: Antibiotic prophylaxis
     Route: 042
     Dates: start: 20250305, end: 20250305
  10. CEFAZOLIN SODIUM [Suspect]
     Active Substance: CEFAZOLIN SODIUM
     Route: 042
     Dates: start: 20250305, end: 20250305
  11. CISATRACURIUM [Suspect]
     Active Substance: CISATRACURIUM
     Indication: Anaesthesia
     Route: 042
     Dates: start: 20250305, end: 20250305
  12. HEPARIN SODIUM [Suspect]
     Active Substance: HEPARIN SODIUM
     Indication: Extracorporeal circulation
     Route: 042
     Dates: start: 20250305
  13. PHENYLEPHRINE HYDROCHLORIDE\PREDNISOLONE ACETATE\SULFACETAMIDE SODIUM [Suspect]
     Active Substance: PHENYLEPHRINE HYDROCHLORIDE\PREDNISOLONE ACETATE\SULFACETAMIDE SODIUM
     Indication: Heparin neutralisation therapy
     Route: 042
     Dates: start: 20250305, end: 20250305
  14. MIDAZOLAM HYDROCHLORIDE [Suspect]
     Active Substance: MIDAZOLAM HYDROCHLORIDE
     Indication: Anaesthesia
     Route: 042
     Dates: start: 20250305, end: 20250305
  15. TRANEXAMIC ACID [Suspect]
     Active Substance: TRANEXAMIC ACID
     Indication: Haemorrhage prophylaxis
     Route: 042
     Dates: start: 20250305, end: 20250305
  16. KETAMINE [Suspect]
     Active Substance: KETAMINE
     Indication: Anaesthesia
     Route: 042
     Dates: start: 20250305, end: 20250305
  17. ETOMIDATE HYDROCHLORIDE [Suspect]
     Active Substance: ETOMIDATE HYDROCHLORIDE
     Indication: Anaesthesia
     Route: 042
     Dates: start: 20250305, end: 20250305
  18. SUFENTANIL [Suspect]
     Active Substance: SUFENTANIL
     Indication: Anaesthesia
     Route: 042
     Dates: start: 20250305, end: 20250305
  19. CALCIUM CHLORIDE\MAGNESIUM CHLORIDE\MALIC ACID\POTASSIUM CHLORIDE\SODI [Suspect]
     Active Substance: CALCIUM CHLORIDE\MAGNESIUM CHLORIDE\MALIC ACID\POTASSIUM CHLORIDE\SODIUM ACETATE\SODIUM CHLORIDE
     Indication: Blood volume expansion
     Route: 042
     Dates: start: 20250305, end: 20250305
  20. UMULINE [Suspect]
     Active Substance: INSULIN HUMAN
     Indication: Hyperglycaemia
     Route: 058
     Dates: start: 20250305, end: 20250305
  21. NOREPINEPHRINE BITARTRATE [Suspect]
     Active Substance: NOREPINEPHRINE BITARTRATE
     Indication: Vasopressive therapy
     Route: 042
     Dates: start: 20250305, end: 20250305
  22. DEXAMETHASONE [Suspect]
     Active Substance: DEXAMETHASONE
     Indication: Prophylaxis of nausea and vomiting
     Route: 042
     Dates: start: 20250305, end: 20250305

REACTIONS (1)
  - Rash maculo-papular [Recovered/Resolved]

NARRATIVE: CASE EVENT DATE: 20250305
